FAERS Safety Report 9252261 (Version 2)
Quarter: 2013Q2

REPORT INFORMATION
  Report Type: Spontaneous
  Country: US (occurrence: US)
  Receive Date: 20130424
  Receipt Date: 20130509
  Transmission Date: 20140414
  Serious: Yes (Hospitalization)
  Sender: FDA-Public Use
  Company Number: US-009507513-2011SP049619

PATIENT
  Age: 55 Year
  Sex: Female
  Weight: 77.11 kg

DRUGS (15)
  1. VICTRELIS [Suspect]
     Dosage: 800 MG, TID
     Route: 048
     Dates: start: 20110908, end: 20120425
  2. PEG-INTRON [Suspect]
     Dosage: 120 MICROGRAM, UNK
     Route: 058
     Dates: start: 20110807, end: 20120425
  3. REBETOL [Suspect]
     Dosage: 200 MG, BID
     Route: 048
     Dates: start: 20110807, end: 20120425
  4. DIOVAN [Concomitant]
     Dosage: 80 MG, UNK
     Route: 048
  5. METFORMIN [Concomitant]
     Dosage: 500 MG, UNK
     Route: 048
  6. XANAX [Concomitant]
     Indication: PRODUCT USED FOR UNKNOWN INDICATION
     Dosage: 0.25 MG, UNK
     Route: 048
  7. PAXIL [Concomitant]
     Indication: PRODUCT USED FOR UNKNOWN INDICATION
     Dosage: 10 MG, UNK
     Route: 048
  8. RANITIDINE [Concomitant]
     Dosage: 75 MG, UNK
     Route: 048
  9. K-DUR [Concomitant]
     Dosage: 10 MEQ, ER
     Route: 048
  10. VERAPAMIL [Concomitant]
     Dosage: 100 MG, ER
     Route: 048
  11. OXYCONTIN [Concomitant]
     Dosage: 10 MG, CR
     Route: 048
  12. SUCRALFATE [Concomitant]
     Dosage: 1 G, UNK
     Route: 048
  13. DOCUSATE SODIUM [Concomitant]
     Dosage: 100 MG, UNK
     Route: 048
  14. FERROUS SULFATE [Concomitant]
     Route: 048
  15. PROCRIT [Concomitant]
     Dosage: 10000/ML
     Route: 058

REACTIONS (5)
  - Anaemia [Recovered/Resolved]
  - Dysgeusia [Unknown]
  - Fatigue [Recovered/Resolved]
  - Nausea [Recovered/Resolved]
  - Neutropenia [Recovered/Resolved]
